FAERS Safety Report 20070934 (Version 1)
Quarter: 2021Q4

REPORT INFORMATION
  Report Type: Spontaneous
  Country: US (occurrence: US)
  Receive Date: 20211115
  Receipt Date: 20211115
  Transmission Date: 20220303
  Serious: Yes (Death, Other)
  Sender: FDA-Public Use
  Company Number: US-ANIPHARMA-2021-US-024602

PATIENT
  Age: 64 Year
  Sex: Male

DRUGS (17)
  1. LACTULOSE [Suspect]
     Active Substance: LACTULOSE
     Indication: Constipation
  2. SENNA [Concomitant]
     Active Substance: SENNA LEAF\SENNOSIDES\SENNOSIDES A AND B
  3. METHYLNALTREXONE [Concomitant]
     Active Substance: METHYLNALTREXONE
  4. ALBUMIN HUMAN [Concomitant]
     Active Substance: ALBUMIN HUMAN
  5. SODIUM BICARBONATE [Concomitant]
     Active Substance: SODIUM BICARBONATE
  6. INSULIN NOS [Concomitant]
     Active Substance: INSULIN NOS
  7. NOREPINEPHRINE [Concomitant]
     Active Substance: NOREPINEPHRINE
  8. VANCOMYCIN [Concomitant]
     Active Substance: VANCOMYCIN
  9. PROPOFOL [Concomitant]
     Active Substance: PROPOFOL
  10. TOCILIZUMAB [Suspect]
     Active Substance: TOCILIZUMAB
     Indication: COVID-19
  11. METHYLPREDNISOLONE [Suspect]
     Active Substance: METHYLPREDNISOLONE
     Indication: COVID-19
     Dosage: 40 MG EVERY 8 HOURS
     Route: 042
  12. HYDROXYCHLOROQUINE [Concomitant]
     Active Substance: HYDROXYCHLOROQUINE
  13. REMDESIVIR [Concomitant]
     Active Substance: REMDESIVIR
  14. CEFTRIAXONE [Concomitant]
     Active Substance: CEFTRIAXONE
  15. DOXYCYCLINE [Concomitant]
     Active Substance: DOXYCYCLINE
  16. PANTOPRAZOLE [Concomitant]
     Active Substance: PANTOPRAZOLE
     Dosage: 40 MG
     Route: 042
  17. POLYETHYLENE GLYCOL [Concomitant]
     Active Substance: POLYETHYLENE GLYCOL

REACTIONS (1)
  - Pneumatosis intestinalis [Fatal]
